FAERS Safety Report 4588555-8 (Version None)
Quarter: 2005Q1

REPORT INFORMATION
  Report Type: 
  Country: None (occurrence: None)
  Receive Date: 20050215
  Receipt Date: 20050215
  Transmission Date: 20050727
  Serious: No
  Sender: FDA-Public Use
  Company Number: None

PATIENT
  Sex: Female
  Weight: 98 kg

DRUGS (7)
  1. GLIADEL [Suspect]
     Indication: GLIOBLASTOMA MULTIFORME
     Dosage: 7.7 MG PER WAFER - MAX OF 8
  2. O6-BENZYLGUANINE (O6BG) [Suspect]
     Indication: GLIOBLASTOMA MULTIFORME
     Dosage: 30 MG/M2 INFUSION X 5 DAYS
  3. DILANTIN [Concomitant]
  4. ASACOL [Concomitant]
  5. DECADRON [Concomitant]
  6. IMODIUM [Concomitant]
  7. PROTONIX [Concomitant]

REACTIONS (4)
  - CEREBROSPINAL FLUID LEAKAGE [None]
  - CULTURE POSITIVE [None]
  - INCISIONAL DRAINAGE [None]
  - POST PROCEDURAL COMPLICATION [None]
